FAERS Safety Report 9991203 (Version 1)
Quarter: 2014Q1

REPORT INFORMATION
  Report Type: Report from Study
  Country: US (occurrence: US)
  Receive Date: 20140310
  Receipt Date: 20140310
  Transmission Date: 20141002
  Serious: No
  Sender: FDA-Public Use
  Company Number: US-ABBVIE-13P-163-1129793-00

PATIENT
  Age: 45 Year
  Sex: Male

DRUGS (5)
  1. HUMIRA [Suspect]
     Indication: CROHN^S DISEASE
     Dosage: RECEIVED FIRST FOUR INJECTIONS
     Dates: start: 20130802, end: 20130802
  2. HUMIRA [Suspect]
  3. LOMOTIL [Concomitant]
     Indication: DIARRHOEA
  4. OMEPRAZOLE [Concomitant]
     Indication: GASTRIC DISORDER
     Dosage: 1 IN THE MORNING AND 1 AT NIGHT
  5. ZANTAC [Concomitant]
     Indication: GASTRIC DISORDER

REACTIONS (4)
  - Local swelling [Not Recovered/Not Resolved]
  - Depression [Recovered/Resolved]
  - Rash macular [Not Recovered/Not Resolved]
  - Diarrhoea [Not Recovered/Not Resolved]
